FAERS Safety Report 6174890-9 (Version None)
Quarter: 2009Q2

REPORT INFORMATION
  Report Type: 
  Country: None (occurrence: None)
  Receive Date: 20090430
  Receipt Date: 20081215
  Transmission Date: 20091009
  Serious: No
  Sender: FDA-Public Use
  Company Number: US-ASTRAZENECA-2008UW27967

PATIENT
  Sex: Female
  Weight: 65.8 kg

DRUGS (6)
  1. NEXIUM [Suspect]
     Indication: GASTROOESOPHAGEAL REFLUX DISEASE
     Route: 048
     Dates: start: 20020101
  2. COUMADIN [Concomitant]
  3. COZAAR [Concomitant]
  4. TAMOXIFEN CITRATE [Concomitant]
  5. SYNTHROID [Concomitant]
  6. VITAMINS [Concomitant]

REACTIONS (2)
  - HYPOCALCAEMIA [None]
  - PARATHYROID DISORDER [None]
